FAERS Safety Report 5849677-4 (Version None)
Quarter: 2008Q3

REPORT INFORMATION
  Report Type: 
  Country: None (occurrence: None)
  Receive Date: 20080818
  Receipt Date: 20080818
  Transmission Date: 20090109
  Serious: Yes (Other)
  Sender: FDA-Public Use
  Company Number: None

PATIENT
  Sex: Female
  Weight: 81.6475 kg

DRUGS (2)
  1. LYRICA [Suspect]
     Indication: FIBROMYALGIA
     Dosage: 150MG TWICE A DAY PO
     Route: 048
     Dates: start: 20080529, end: 20080701
  2. LYRICA [Suspect]
     Indication: FIBROMYALGIA
     Dosage: 75MG TWICE A DAY PO
     Route: 048
     Dates: start: 20071129, end: 20080528

REACTIONS (17)
  - AGITATION [None]
  - BALANCE DISORDER [None]
  - DISTURBANCE IN ATTENTION [None]
  - DRUG EFFECT DECREASED [None]
  - DRUG WITHDRAWAL SYNDROME [None]
  - FATIGUE [None]
  - FEELING ABNORMAL [None]
  - HYPERHIDROSIS [None]
  - INSOMNIA [None]
  - MEMORY IMPAIRMENT [None]
  - MUSCLE TWITCHING [None]
  - NERVOUSNESS [None]
  - PAIN [None]
  - PRURITUS [None]
  - RESTLESS LEGS SYNDROME [None]
  - ROAD TRAFFIC ACCIDENT [None]
  - WEIGHT FLUCTUATION [None]
